FAERS Safety Report 5401451-9 (Version None)
Quarter: 2007Q3

REPORT INFORMATION
  Report Type: 
  Country: None (occurrence: None)
  Receive Date: 20070726
  Receipt Date: 20070709
  Transmission Date: 20080115
  Serious: Yes (Death, Other)
  Sender: FDA-Public Use
  Company Number: 2006JP000404

PATIENT
  Age: 58 Year
  Sex: Male

DRUGS (4)
  1. PROGRAF [Suspect]
     Indication: RENAL TRANSPLANT
     Dosage: 4 MG, D, ORAL
     Route: 048
  2. PREDNISOLONE [Suspect]
     Indication: RENAL TRANSPLANT
     Dosage: 10 MG, D, ORAL
     Route: 048
  3. PREDNISOLONE [Suspect]
     Indication: RENAL TRANSPLANT
     Dosage: 20 MG, D, IV NOS
     Route: 042
  4. MIZORIBINE (MIZORIBINE) [Concomitant]

REACTIONS (8)
  - AORTIC ANEURYSM [None]
  - AORTIC CALCIFICATION [None]
  - CHRONIC ALLOGRAFT NEPHROPATHY [None]
  - CONTINUOUS HAEMODIAFILTRATION [None]
  - DIABETES MELLITUS [None]
  - POST PROCEDURAL COMPLICATION [None]
  - RENAL FAILURE CHRONIC [None]
  - RENAL IMPAIRMENT [None]
